FAERS Safety Report 5397532-9 (Version None)
Quarter: 2007Q3

REPORT INFORMATION
  Report Type: 
  Country: None (occurrence: None)
  Receive Date: 20070726
  Receipt Date: 20070724
  Transmission Date: 20080115
  Serious: Yes (Death, Hospitalization)
  Sender: FDA-Public Use
  Company Number: DE-JNJFOC-20070704928

PATIENT
  Age: 81 Year
  Sex: Male

DRUGS (2)
  1. TAVANIC [Suspect]
     Indication: PNEUMONIA
     Route: 048
  2. RAMIPRIL [Concomitant]
     Indication: HYPERTENSION
     Route: 048

REACTIONS (3)
  - AORTIC ANEURYSM [None]
  - TENDON RUPTURE [None]
  - TENDONITIS [None]
